FAERS Safety Report 6441922-X (Version None)
Quarter: 2009Q4

REPORT INFORMATION
  Report Type: 
  Country: None (occurrence: None)
  Receive Date: 20091112
  Receipt Date: 20091102
  Transmission Date: 20100525
  Serious: Yes (Disabling)
  Sender: FDA-Public Use
  Company Number: ADR46702009

PATIENT
  Age: 80 Year
  Sex: Female

DRUGS (5)
  1. SIMVASTATIN [Suspect]
     Indication: BLOOD CHOLESTEROL INCREASED
     Dosage: 40 MG ORAL
     Route: 048
     Dates: start: 20060401, end: 20070101
  2. ACETAMINOPHEN WITH PROPOXYPHENE HCL TAB [Concomitant]
  3. DICLOFENAC [Concomitant]
  4. METFORMIN HCL [Concomitant]
  5. TRAMADOL HCL [Concomitant]

REACTIONS (7)
  - ABDOMINAL PAIN [None]
  - DECREASED APPETITE [None]
  - DIARRHOEA [None]
  - MUSCLE ATROPHY [None]
  - MYALGIA [None]
  - NAUSEA [None]
  - WEIGHT DECREASED [None]
